FAERS Safety Report 6368457-7 (Version None)
Quarter: 2009Q3

REPORT INFORMATION
  Report Type: 
  Country: None (occurrence: None)
  Receive Date: 20090917
  Receipt Date: 20090601
  Transmission Date: 20100115
  Serious: Yes (Hospitalization)
  Sender: FDA-Public Use
  Company Number: US-2009-00152

PATIENT
  Age: 55 Year
  Sex: Male

DRUGS (3)
  1. SERTRALINE HYDROCHLORIDE [Suspect]
     Dosage: MANUFACTURER AND DOSE NOT PROVIDED IN PUBLICATION
  2. TRAMADOL [Suspect]
  3. TRAZODONE HCL [Concomitant]

REACTIONS (3)
  - DRUG ABUSE [None]
  - DRUG INTERACTION [None]
  - SEROTONIN SYNDROME [None]
